FAERS Safety Report 9539560 (Version 2)
Quarter: 2014Q2

REPORT INFORMATION
  Report Type: Spontaneous
  Country: DE (occurrence: None)
  Receive Date: 20130917
  Receipt Date: 20140509
  Transmission Date: 20141212
  Serious: Yes (Other)
  Sender: FDA-Public Use
  Company Number: 1309-1142

PATIENT
  Age: 87 Year
  Sex: Female

DRUGS (1)
  1. EYLEA [Suspect]
     Indication: AGE-RELATED MACULAR DEGENERATION
     Dosage: 2 MG MILLIGRAM(S), 6 TO 7 WEEKS, INTRAOCULAR?
     Route: 031
     Dates: start: 201303

REACTIONS (1)
  - Glaucoma [None]
